FAERS Safety Report 4743040-5 (Version None)
Quarter: 2005Q3

REPORT INFORMATION
  Report Type: 
  Country: None (occurrence: None)
  Receive Date: 20050811
  Receipt Date: 20050728
  Transmission Date: 20060218
  Serious: Yes (Other)
  Sender: FDA-Public Use
  Company Number: 2005081163

PATIENT
  Age: 46 Year
  Sex: Female
  Weight: 84.369 kg

DRUGS (10)
  1. BEXTRA [Suspect]
     Indication: SWELLING
     Dosage: 20 MG (20 MG, 1 IN 1 D),ORAL
     Route: 048
     Dates: start: 20040218
  2. NEOSPORIN [Suspect]
     Indication: SKIN LESION
     Dosage: TOPICAL
     Route: 061
  3. OXYCONTIN [Concomitant]
  4. SOMA [Concomitant]
  5. NEXIUM [Concomitant]
  6. PROPRANOLOL [Concomitant]
  7. AMBIEN [Concomitant]
  8. VALIUM [Concomitant]
  9. DULOXETINE HYDROCHLORIDE (DULOEXETINE HYDROCHLORIDE) [Concomitant]
  10. OXYCODONE HCL [Concomitant]

REACTIONS (9)
  - BURSITIS [None]
  - EAR DISORDER [None]
  - HYPERTENSION [None]
  - IMPAIRED HEALING [None]
  - NASOPHARYNGITIS [None]
  - PRURITUS [None]
  - RASH PUSTULAR [None]
  - SKIN LESION [None]
  - THERAPY NON-RESPONDER [None]
